FAERS Safety Report 6832004-3 (Version None)
Quarter: 2010Q3

REPORT INFORMATION
  Report Type: 
  Country: None (occurrence: None)
  Receive Date: 20100712
  Receipt Date: 20100629
  Transmission Date: 20110219
  Serious: Yes (Death)
  Sender: FDA-Public Use
  Company Number: CO-ROCHE-712150

PATIENT
  Sex: Female

DRUGS (3)
  1. AVASTIN [Suspect]
     Indication: COLORECTAL CANCER
     Dosage: FREQUENCY REPORTED AS Q21DAYS.
     Route: 042
     Dates: start: 20100115, end: 20100514
  2. XELODA [Suspect]
     Indication: COLORECTAL CANCER
     Dosage: FREQUENCY REPORTED AS QD.
     Route: 048
     Dates: start: 20091107, end: 20100514
  3. OXYCODONE HCL [Concomitant]
     Indication: PAIN
     Dosage: FREQUENCY REPORTED AS QD.
     Route: 048

REACTIONS (1)
  - MALIGNANT NEOPLASM PROGRESSION [None]
